FAERS Safety Report 7007931-7 (Version None)
Quarter: 2010Q3

REPORT INFORMATION
  Report Type: 
  Country: None (occurrence: None)
  Receive Date: 20100922
  Receipt Date: 20100913
  Transmission Date: 20110219
  Serious: Yes (Hospitalization)
  Sender: FDA-Public Use
  Company Number: FR-PFIZER INC-2010091843

PATIENT
  Age: 58 Year
  Sex: Male
  Weight: 88 kg

DRUGS (6)
  1. SUTENT [Suspect]
     Indication: THYROID CANCER
     Dosage: 50 MG, 1X/DAY
     Dates: start: 20080108, end: 20100718
  2. LEVOTHYROXINE SODIUM [Concomitant]
     Dosage: 200 UG, 1X/DAY
     Dates: start: 20060101
  3. FENOFIBRATE [Concomitant]
     Indication: HYPERCHOLESTEROLAEMIA
     Dosage: 1 DF, 1X/DAY
     Dates: start: 20080101
  4. NEXIUM [Concomitant]
     Indication: ABDOMINAL PAIN UPPER
     Dosage: 40 MG, 1X/DAY
     Dates: start: 20080101
  5. EFFEXOR [Concomitant]
     Indication: DEPRESSION
     Dosage: 75 MG, 1X/DAY
     Dates: start: 20040101
  6. RIVOTRIL [Concomitant]
     Indication: NEUROPATHY PERIPHERAL
     Dosage: UNK
     Dates: start: 20090101

REACTIONS (1)
  - GENERAL PHYSICAL HEALTH DETERIORATION [None]
